FAERS Safety Report 13614025 (Version 1)
Quarter: 2017Q2

REPORT INFORMATION
  Report Type: Spontaneous
  Country: PL (occurrence: PL)
  Receive Date: 20170606
  Receipt Date: 20170606
  Transmission Date: 20170830
  Serious: Yes (Death, Other)
  Sender: FDA-Public Use
  Company Number: PL-SUN PHARMACEUTICAL INDUSTRIES LTD-2017RR-142169

PATIENT
  Age: 34 Year
  Sex: Male

DRUGS (14)
  1. CISPLATIN. [Suspect]
     Active Substance: CISPLATIN
     Dosage: 6 X
     Route: 065
     Dates: start: 201009
  2. 5-FU [Suspect]
     Active Substance: FLUOROURACIL
     Dosage: 6 X
     Route: 065
     Dates: start: 201009
  3. CISPLATIN. [Suspect]
     Active Substance: CISPLATIN
     Indication: NASOPHARYNGEAL CANCER
     Dosage: 2 X
     Route: 065
     Dates: start: 200909
  4. CETUXIMAB. [Suspect]
     Active Substance: CETUXIMAB
     Indication: NASOPHARYNGEAL CANCER
     Dosage: UNK
     Route: 065
     Dates: start: 201205, end: 201210
  5. PACLITAXEL. [Suspect]
     Active Substance: PACLITAXEL
     Indication: NASOPHARYNGEAL CANCER
     Dosage: 80 MG/M2, EVERY 7 DAYS
     Route: 065
     Dates: start: 201401
  6. GEMCITABINE [Suspect]
     Active Substance: GEMCITABINE\GEMCITABINE HYDROCHLORIDE
     Indication: NASOPHARYNGEAL CANCER
     Dosage: UNK
     Route: 065
     Dates: start: 201303
  7. 5-FU [Suspect]
     Active Substance: FLUOROURACIL
     Dosage: 6 X
     Route: 065
     Dates: start: 201205, end: 201210
  8. CISPLATIN. [Suspect]
     Active Substance: CISPLATIN
     Dosage: 6 X
     Route: 065
     Dates: start: 201305
  9. DOCETAXEL. [Suspect]
     Active Substance: DOCETAXEL
     Indication: NASOPHARYNGEAL CANCER
     Dosage: 6X AS A MONOTHERAPY
     Route: 065
     Dates: start: 201108, end: 201112
  10. CETUXIMAB. [Suspect]
     Active Substance: CETUXIMAB
     Dosage: AS MONOTHERAPY
     Route: 065
     Dates: end: 201302
  11. GEMCITABINE [Suspect]
     Active Substance: GEMCITABINE\GEMCITABINE HYDROCHLORIDE
     Dosage: UNK
     Route: 065
     Dates: start: 201409
  12. CISPLATIN. [Suspect]
     Active Substance: CISPLATIN
     Dosage: UNK
     Route: 065
     Dates: start: 201409
  13. 5-FU [Suspect]
     Active Substance: FLUOROURACIL
     Indication: NASOPHARYNGEAL CANCER
     Dosage: 2 X
     Route: 065
     Dates: start: 200909
  14. CISPLATIN. [Suspect]
     Active Substance: CISPLATIN
     Dosage: 6 X
     Route: 065
     Dates: start: 201205, end: 201210

REACTIONS (4)
  - Disease progression [Fatal]
  - Thrombocytopenia [Recovered/Resolved]
  - Anaemia [Recovered/Resolved]
  - Drug effect incomplete [Fatal]
